APPROVED DRUG PRODUCT: PRISCOLINE
Active Ingredient: TOLAZOLINE HYDROCHLORIDE
Strength: 25MG/ML
Dosage Form/Route: INJECTABLE;INJECTION
Application: N006403 | Product #005
Applicant: NOVARTIS PHARMACEUTICALS CORP
Approved: Feb 22, 1985 | RLD: No | RS: No | Type: DISCN